FAERS Safety Report 8662960 (Version 4)
Quarter: 2013Q1

REPORT INFORMATION
  Report Type: Spontaneous
  Country: US (occurrence: US)
  Receive Date: 20120712
  Receipt Date: 20130205
  Transmission Date: 20140127
  Serious: Yes (Other)
  Sender: FDA-Public Use
  Company Number: US-FRI-1000036877

PATIENT
  Age: 77 Year
  Sex: Female

DRUGS (6)
  1. BYSTOLIC [Suspect]
     Indication: HYPERTENSION
     Dosage: 5 MG
     Route: 048
     Dates: start: 20110331
  2. CIPROFLOXACIN [Suspect]
     Indication: URINARY TRACT INFECTION
     Dosage: 250 MG BID
     Route: 048
     Dates: start: 20120413, end: 20120416
  3. CIPROFLOXACIN [Suspect]
     Dosage: 500 MG BID
     Route: 048
     Dates: start: 20120518, end: 20120523
  4. AMLODIPINE [Concomitant]
     Indication: HYPERTENSION
     Dosage: 5 MG BID
     Route: 048
  5. VITAMIN D3 [Concomitant]
     Dosage: 2000 MG QD
     Route: 048
  6. CALCIUM [Concomitant]
     Dosage: 600 MG BID
     Dates: start: 20120626

REACTIONS (9)
  - Urinary tract infection [Recovered/Resolved]
  - Joint swelling [Not Recovered/Not Resolved]
  - Pruritus [Recovered/Resolved]
  - Chills [Not Recovered/Not Resolved]
  - Decreased appetite [Not Recovered/Not Resolved]
  - Initial insomnia [Not Recovered/Not Resolved]
  - Urine output decreased [Not Recovered/Not Resolved]
  - Asthenia [Not Recovered/Not Resolved]
  - Headache [Not Recovered/Not Resolved]
